FAERS Safety Report 5625288-0 (Version None)
Quarter: 2008Q1

REPORT INFORMATION
  Report Type: 
  Country: None (occurrence: None)
  Receive Date: 20080208
  Receipt Date: 20080201
  Transmission Date: 20080703
  Serious: Yes (Hospitalization)
  Sender: FDA-Public Use
  Company Number: 2008-00615

PATIENT
  Age: 45 Year
  Sex: Female

DRUGS (2)
  1. FIORINAL [Suspect]
     Indication: ANTICOAGULANT THERAPY
     Dosage: ORAL
     Route: 048
  2. CLOPIDOGREL [Suspect]
     Indication: ANTICOAGULANT THERAPY
     Dosage: ORAL
     Route: 048

REACTIONS (1)
  - OCULAR RETROBULBAR HAEMORRHAGE [None]
